FAERS Safety Report 6713295-6 (Version None)
Quarter: 2010Q2

REPORT INFORMATION
  Report Type: 
  Country: None (occurrence: None)
  Receive Date: 20100503
  Receipt Date: 20100419
  Transmission Date: 20101027
  Serious: Yes (Hospitalization)
  Sender: FDA-Public Use
  Company Number: 2010AP000808

PATIENT
  Age: 55 Year
  Sex: Female

DRUGS (4)
  1. RISPERIDONE [Suspect]
     Indication: PSYCHOTIC DISORDER
     Dosage: 2 MG;PO
     Route: 048
     Dates: start: 20040101
  2. CITALOPRAM HYDROBROMIDE [Concomitant]
  3. SIMVASTATIN [Concomitant]
  4. ANTIPSYCHOTICS (ANTIPSYCHOTICS) [Concomitant]

REACTIONS (3)
  - DEEP VEIN THROMBOSIS [None]
  - RENAL DISORDER [None]
  - STENT PLACEMENT [None]
